FAERS Safety Report 19744677 (Version 2)
Quarter: 2021Q4

REPORT INFORMATION
  Report Type: Spontaneous
  Country: US (occurrence: US)
  Receive Date: 20210825
  Receipt Date: 20211004
  Transmission Date: 20220303
  Serious: No
  Sender: FDA-Public Use
  Company Number: NVSC2021US188538

PATIENT
  Sex: Female

DRUGS (2)
  1. TABRECTA [Suspect]
     Active Substance: CAPMATINIB
     Indication: Malignant mesenchymoma
     Dosage: 200 MG, BID
     Route: 048
  2. TABRECTA [Suspect]
     Active Substance: CAPMATINIB
     Dosage: UNK (DOSE REDUCED)
     Route: 065

REACTIONS (4)
  - Dry throat [Unknown]
  - Dizziness [Unknown]
  - Oedema peripheral [Unknown]
  - Hypoacusis [Unknown]
